FAERS Safety Report 20314272 (Version 2)
Quarter: 2022Q2

REPORT INFORMATION
  Report Type: Spontaneous
  Country: US (occurrence: US)
  Receive Date: 20220109
  Receipt Date: 20220407
  Transmission Date: 20220721
  Serious: No
  Sender: FDA-Public Use
  Company Number: US-SA-SAC20220106000455

PATIENT
  Age: 38 Year
  Sex: Female

DRUGS (1)
  1. DUPIXENT [Suspect]
     Active Substance: DUPILUMAB
     Indication: Product used for unknown indication
     Dosage: 300 MG; FREQ : OTHER
     Route: 058
     Dates: start: 20211020

REACTIONS (2)
  - Dry eye [Unknown]
  - Visual impairment [Unknown]

NARRATIVE: CASE EVENT DATE: 20211118
